FAERS Safety Report 6808316-6 (Version None)
Quarter: 2010Q2

REPORT INFORMATION
  Report Type: 
  Country: None (occurrence: None)
  Receive Date: 20100629
  Receipt Date: 20090611
  Transmission Date: 20101027
  Serious: No
  Sender: FDA-Public Use
  Company Number: US-PFIZER INC-2009198524

PATIENT
  Sex: Male
  Weight: 82.553 kg

DRUGS (5)
  1. ALPRAZOLAM [Suspect]
     Indication: ANXIETY
     Dosage: 2 MG, AS NEEDED
     Route: 048
  2. ALPRAZOLAM [Suspect]
     Indication: PANIC ATTACK
  3. LEXAPRO [Concomitant]
     Dosage: 20 MG, 1X/DAY
  4. PROPRANOLOL [Concomitant]
     Dosage: UNK
  5. TRAZODONE [Concomitant]
     Indication: SLEEP DISORDER
     Dosage: UNK

REACTIONS (2)
  - DRUG INEFFECTIVE [None]
  - INTENTIONAL DRUG MISUSE [None]
